FAERS Safety Report 22989414 (Version 2)
Quarter: 2023Q4

REPORT INFORMATION
  Report Type: Spontaneous
  Country: FR (occurrence: FR)
  Receive Date: 20230927
  Receipt Date: 20231007
  Transmission Date: 20240109
  Serious: Yes (Life-Threatening, Hospitalization, Other)
  Sender: FDA-Public Use
  Company Number: FR-MLMSERVICE-20210624-2967820-1

PATIENT
  Age: 51 Year
  Sex: Female
  Weight: 38 kg

DRUGS (4)
  1. PREGABALIN [Suspect]
     Active Substance: PREGABALIN
     Indication: Product used for unknown indication
     Dosage: 75 MILLIGRAM
     Route: 065
  2. OXAZEPAM [Suspect]
     Active Substance: OXAZEPAM
     Indication: Insomnia
     Dosage: 50 MILLIGRAM, 3 TIMES A DAY
     Route: 048
  3. OXAZEPAM [Suspect]
     Active Substance: OXAZEPAM
     Indication: Anxiety
  4. VENLAFAXINE [Suspect]
     Active Substance: VENLAFAXINE HYDROCHLORIDE
     Indication: Depression
     Dosage: UNK
     Route: 048

REACTIONS (8)
  - Coma [Recovered/Resolved]
  - Cardiotoxicity [Recovered/Resolved]
  - Bezoar [Recovered/Resolved]
  - Lactic acidosis [Recovered/Resolved]
  - Electrocardiogram QT prolonged [Recovering/Resolving]
  - Toxicity to various agents [Recovering/Resolving]
  - Intentional overdose [Recovering/Resolving]
  - Sinus bradycardia [Recovered/Resolved]

NARRATIVE: CASE EVENT DATE: 20210902
